FAERS Safety Report 7626145-0 (Version None)
Quarter: 2011Q3

REPORT INFORMATION
  Report Type: 
  Country: None (occurrence: None)
  Receive Date: 20110713
  Receipt Date: 20110627
  Transmission Date: 20111222
  Serious: Yes (Disabling, Other)
  Sender: FDA-Public Use
  Company Number: ALA_02218_2011

PATIENT
  Sex: Female
  Weight: 130.1823 kg

DRUGS (123)
  1. TAGAMENT /00397401/ [Concomitant]
  2. AMITRIPTYLINE HCL [Concomitant]
  3. PHENTERMINE [Concomitant]
  4. UNSPECIFIED CYCLIC ANTIDEPRESSENTS [Concomitant]
  5. HYDROCHLOROTHIAZIDE [Concomitant]
  6. CYCLOBENZAPRINE [Concomitant]
  7. TENEX [Concomitant]
  8. NYSTATIN [Concomitant]
  9. TOPROL-XL [Concomitant]
  10. ORPHENADRINE CITRATE [Concomitant]
  11. CIMETIDINE [Concomitant]
  12. VITAMINUM C [Concomitant]
  13. INSULIN [Concomitant]
  14. BENADRYL [Concomitant]
  15. PHENERGAN /00033001/ [Concomitant]
  16. GLUCOPHAGE [Concomitant]
  17. ZYRTEC [Concomitant]
  18. PROVENTIL /00139501/ [Concomitant]
  19. KEFLEX /0014501/ [Concomitant]
  20. POTASSIUM CHLORIDE [Concomitant]
  21. DIMETAME /00098602/ [Concomitant]
  22. ERYTHROCIN STEARATE [Concomitant]
  23. ASENDIN [Concomitant]
  24. BETAGAN [Concomitant]
  25. LORTRISONE [Concomitant]
  26. ZITHROMAX [Concomitant]
  27. GABAPENTIN [Concomitant]
  28. XALATAN [Concomitant]
  29. VITAMINE E [Concomitant]
  30. BETA CAROTENE [Concomitant]
  31. MAG-OX [Concomitant]
  32. ASPIRIN [Concomitant]
  33. MONISTAT [Concomitant]
  34. DILANTIN [Concomitant]
  35. LOZOL [Concomitant]
  36. DIABINESE [Concomitant]
  37. ERYTHROMYCIN ETHYLSUCCINATE [Concomitant]
  38. ERY-TAB [Concomitant]
  39. BETOPTIC [Concomitant]
  40. GEMFIBROZIL [Concomitant]
  41. PHENYLPROPRANOLAMINE W/GUAIFENESIN [Concomitant]
  42. POTASSIUM CHLORIDE [Concomitant]
  43. ALPRAZOLAM [Concomitant]
  44. TRAMADOL HCL [Concomitant]
  45. KLOR-CON [Concomitant]
  46. MIRALAX /00754501/ [Concomitant]
  47. LANTUS [Concomitant]
  48. PHENAZOPYRIDINE HCL TAB [Concomitant]
  49. HELIDAC [Concomitant]
  50. CASTOR OIL W/PERUVIN BALSAM/TRYPSIN [Concomitant]
  51. REGLAN [Suspect]
     Indication: GASTROOESOPHAGEAL REFLUX DISEASE
     Dosage: 1 MG ORAL; 10 MG ORAL; 10 MG ORAL
     Route: 048
     Dates: start: 20080913, end: 20090625
  52. REGLAN [Suspect]
     Indication: GASTROOESOPHAGEAL REFLUX DISEASE
     Dosage: 1 MG ORAL; 10 MG ORAL; 10 MG ORAL
     Route: 048
     Dates: start: 19870922, end: 20080809
  53. REGLAN [Suspect]
     Indication: GASTROOESOPHAGEAL REFLUX DISEASE
     Dosage: 1 MG ORAL; 10 MG ORAL; 10 MG ORAL
     Route: 048
     Dates: start: 19841031, end: 19870725
  54. FUROSEMIDE [Concomitant]
  55. ALDOMET /00000101/ [Concomitant]
  56. TRINALIN /00617601/ [Concomitant]
  57. DIAZEPAM [Concomitant]
  58. CARAFATE [Concomitant]
  59. CIPRO [Concomitant]
  60. CHORPHENIRAMINE W/PSEUDOEPHEDRINE [Concomitant]
  61. LIPITOR [Concomitant]
  62. NITROTAB [Concomitant]
  63. CITALOPRAM HYDROBROMIDE [Concomitant]
  64. COLLAGENASE SANTYL [Concomitant]
  65. GLUCOSAMINE + CHONDROITIN /01625901/ [Concomitant]
  66. VITAMIN B COMPLEX CAP [Concomitant]
  67. HYDROXYZINE HCL [Concomitant]
  68. ZANTAC [Concomitant]
  69. SECTRAL [Concomitant]
  70. INDAPAMIDE [Concomitant]
  71. PROMETHAZINE HCL AND CODEINE [Concomitant]
  72. DIPOTASSIUM CHORAZEPATE [Concomitant]
  73. MECLIZINE /00072801/ [Concomitant]
  74. SUPRAX /00821801/ [Concomitant]
  75. AMITRIPTYLIN WITH PERPHENAZINE [Concomitant]
  76. ISOSORBIDE MONONITRATE [Concomitant]
  77. LEVAQUIN [Concomitant]
  78. CIPROFLOXACIN [Concomitant]
  79. METOPROLOL TARTRATE [Concomitant]
  80. DAILY MULTIVITAMIN [Concomitant]
  81. METHADON AMIDONE HCL TAB [Concomitant]
  82. NOVAFED [Concomitant]
  83. ULTRAM [Concomitant]
  84. TENORMIN [Concomitant]
  85. MEDROXYPROGESTERONE [Concomitant]
  86. GLUCOTROL [Concomitant]
  87. ATENOLOL [Concomitant]
  88. HYDROCODONE BITARTRATE AND ACETAMINOPHEN [Concomitant]
  89. LISINOPRIL [Concomitant]
  90. DURAGESIC-100 [Concomitant]
  91. GRAPEFRUIT PECTIN [Concomitant]
  92. Q-10 CO-ENZYME [Concomitant]
  93. TRANXENE [Concomitant]
  94. PROPOX-N [Concomitant]
  95. CHLORPROPAMIDE [Concomitant]
  96. ANUSOL /00117301/ [Concomitant]
  97. REGLAFEN [Concomitant]
  98. GLYNASE PRESTAB [Concomitant]
  99. CEPHALEXIN [Concomitant]
  100. ALBUTEROL [Concomitant]
  101. PRINIVIL [Concomitant]
  102. NITROFURANTOIN [Concomitant]
  103. ULTRACET [Concomitant]
  104. GLYCOLAX [Concomitant]
  105. CLOPIDOGREL [Concomitant]
  106. CELEBREX [Concomitant]
  107. UNSPECIFIED STOOL SOFTENER [Concomitant]
  108. RANITIDINE [Concomitant]
  109. NEURONTIN [Concomitant]
  110. HUMULIN 70/30 [Concomitant]
  111. AUGMENTON /00756801/ [Concomitant]
  112. METHYLDOPA [Concomitant]
  113. PROMETHAZINE [Concomitant]
  114. LOTRIMIN [Concomitant]
  115. DURICEF [Concomitant]
  116. PROPOXYPHENE NAPSYLATE [Concomitant]
  117. TRIPLE ANTIBIOTIC /00038301/ [Concomitant]
  118. ACEBUTOLOL [Concomitant]
  119. PLAVIX [Concomitant]
  120. METFORMIN HCL [Concomitant]
  121. POLYETHYLENE GLYCOL-3350 [Concomitant]
  122. OXYBUTYNIN [Concomitant]
  123. LIDODERMC [Concomitant]

REACTIONS (45)
  - MOBILITY DECREASED [None]
  - FEELING ABNORMAL [None]
  - FEAR [None]
  - HALLUCINATION [None]
  - ABDOMINAL PAIN UPPER [None]
  - CHOREA [None]
  - ECONOMIC PROBLEM [None]
  - MOVEMENT DISORDER [None]
  - MYOCARDIAL ISCHAEMIA [None]
  - ROAD TRAFFIC ACCIDENT [None]
  - CONSTIPATION [None]
  - FAECALOMA [None]
  - DYSAESTHESIA [None]
  - ANGINA PECTORIS [None]
  - LEFT VENTRICULAR DYSFUNCTION [None]
  - ASTHENIA [None]
  - TARDIVE DYSKINESIA [None]
  - PARKINSON'S DISEASE [None]
  - DYSPHAGIA [None]
  - DEPRESSION [None]
  - RESTLESS LEGS SYNDROME [None]
  - HEART INJURY [None]
  - AORTIC VALVE INCOMPETENCE [None]
  - PARKINSONISM [None]
  - INJURY [None]
  - DYSPNOEA [None]
  - SCREAMING [None]
  - ANXIETY [None]
  - SINUS TACHYCARDIA [None]
  - ELECTROCARDIOGRAM ST SEGMENT ABNORMAL [None]
  - NAUSEA [None]
  - EXTRAPYRAMIDAL DISORDER [None]
  - AKATHISIA [None]
  - NERVOUS SYSTEM DISORDER [None]
  - EXTRASYSTOLES [None]
  - MUSCLE SPASMS [None]
  - MITRAL VALVE INCOMPETENCE [None]
  - DIZZINESS [None]
  - RETCHING [None]
  - DECREASED ACTIVITY [None]
  - NERVOUSNESS [None]
  - EMOTIONAL DISORDER [None]
  - PALPITATIONS [None]
  - CORONARY ARTERY DISEASE [None]
  - DIABETIC VASCULAR DISORDER [None]
